FAERS Safety Report 13024958 (Version 4)
Quarter: 2017Q1

REPORT INFORMATION
  Report Type: Report from Study
  Country: US (occurrence: US)
  Receive Date: 20161213
  Receipt Date: 20170117
  Transmission Date: 20170428
  Serious: No
  Sender: FDA-Public Use
  Company Number: US-009507513-1612USA004963

PATIENT
  Age: 61 Year
  Sex: Female

DRUGS (11)
  1. PEMBROLIZUMAB. [Suspect]
     Active Substance: PEMBROLIZUMAB
     Dosage: THIRD INFUSION
     Dates: start: 20161219, end: 20161219
  2. ISOQUERCETIN [Concomitant]
     Dosage: UNK
  3. LAMOTRIGINE. [Concomitant]
     Active Substance: LAMOTRIGINE
     Dosage: UNK
  4. PEMBROLIZUMAB. [Suspect]
     Active Substance: PEMBROLIZUMAB
     Indication: NON-SMALL CELL LUNG CANCER
     Dosage: FIRST INFUSION
     Dates: start: 20161104, end: 20161104
  5. PEMBROLIZUMAB. [Suspect]
     Active Substance: PEMBROLIZUMAB
     Dosage: SECOND INFUSION
     Dates: start: 20161128, end: 20161128
  6. HYDROCHLOROTHIAZIDE. [Concomitant]
     Active Substance: HYDROCHLOROTHIAZIDE
     Dosage: UNK
  7. POTASSIUM (UNSPECIFIED) [Concomitant]
     Active Substance: POTASSIUM
     Dosage: UNK
  8. BUPROPION HYDROCHLORIDE. [Concomitant]
     Active Substance: BUPROPION HYDROCHLORIDE
     Dosage: UNK
  9. RANITIDINE. [Concomitant]
     Active Substance: RANITIDINE
     Dosage: UNK
  10. PEMBROLIZUMAB. [Suspect]
     Active Substance: PEMBROLIZUMAB
     Dosage: FOURTH INFUSION
     Dates: start: 20170110, end: 20170110
  11. LORATADINE. [Concomitant]
     Active Substance: LORATADINE
     Dosage: UNK
     Route: 048

REACTIONS (11)
  - Productive cough [Recovered/Resolved]
  - Dyspnoea [Unknown]
  - Haemoptysis [Recovered/Resolved]
  - Feeling abnormal [Recovering/Resolving]
  - Memory impairment [Recovering/Resolving]
  - Rash pruritic [Recovered/Resolved]
  - Nausea [Recovered/Resolved]
  - Disturbance in attention [Recovering/Resolving]
  - Dry skin [Not Recovered/Not Resolved]
  - Fatigue [Not Recovered/Not Resolved]
  - Rash [Not Recovered/Not Resolved]

NARRATIVE: CASE EVENT DATE: 2016
